FAERS Safety Report 12750806 (Version 1)
Quarter: 2016Q3

REPORT INFORMATION
  Report Type: Spontaneous
  Country: US (occurrence: US)
  Receive Date: 20160914
  Receipt Date: 20160914
  Transmission Date: 20161109
  Serious: No
  Sender: FDA-Public Use
  Company Number: None

PATIENT
  Age: 16 Year

DRUGS (1)
  1. SAIZEN [Suspect]
     Active Substance: SOMATROPIN
     Indication: HYPOPITUITARISM

REACTIONS (2)
  - Device use issue [None]
  - Device damage [None]

NARRATIVE: CASE EVENT DATE: 20160913
